FAERS Safety Report 19029829 (Version 1)
Quarter: 2021Q1

REPORT INFORMATION
  Report Type: Spontaneous
  Country: US (occurrence: US)
  Receive Date: 20210319
  Receipt Date: 20210319
  Transmission Date: 20210420
  Serious: Yes (Hospitalization, Other)
  Sender: FDA-Public Use
  Company Number: US-AUROBINDO-AUR-APL-2021-010772

PATIENT
  Age: 5 Day
  Sex: Male
  Weight: .72 kg

DRUGS (1)
  1. ACETAMINOPHEN. [Suspect]
     Active Substance: ACETAMINOPHEN
     Indication: PATENT DUCTUS ARTERIOSUS
     Dosage: 90 MILLIGRAM, FOUR TIMES/DAY (GIVEN 3 TIMES)
     Route: 065

REACTIONS (6)
  - Neonatal toxicity [Recovered/Resolved]
  - Toxicity to various agents [Recovered/Resolved]
  - Accidental overdose [Recovered/Resolved]
  - Analgesic drug level increased [Recovered/Resolved]
  - Hepatotoxicity [Recovered/Resolved]
  - Dose calculation error [Recovered/Resolved]
